FAERS Safety Report 7609746 (Version 6)
Quarter: 2015Q1

REPORT INFORMATION
  Report Type: Spontaneous
  Country: US (occurrence: US)
  Receive Date: 20100928
  Receipt Date: 20150318
  Transmission Date: 20150721
  Serious: Yes (Hospitalization, Other)
  Sender: FDA-Public Use
  Company Number: US-BAYER-201034752NA

PATIENT
  Age: 31 Year
  Sex: Female
  Weight: 99.77 kg

DRUGS (2)
  1. CYMBALTA [Concomitant]
     Active Substance: DULOXETINE HYDROCHLORIDE
  2. YASMIN [Suspect]
     Active Substance: DROSPIRENONE\ETHINYL ESTRADIOL
     Indication: CONTRACEPTION
     Dosage: 1 TAB / DAY
     Dates: start: 200509, end: 200604

REACTIONS (4)
  - Pulmonary embolism [None]
  - Chest pain [None]
  - Myocardial infarction [None]
  - Pain [None]

NARRATIVE: CASE EVENT DATE: 200604
